FAERS Safety Report 8876992 (Version 1)
Quarter: 2012Q4

REPORT INFORMATION
  Report Type: Spontaneous
  Country: US (occurrence: None)
  Receive Date: 20121024
  Receipt Date: 20121024
  Transmission Date: 20130627
  Serious: Yes (Other)
  Sender: FDA-Public Use
  Company Number: US-1194717

PATIENT

DRUGS (4)
  1. TRIESENCE [Suspect]
     Indication: MACULAR OEDEMA
     Route: 031
  2. BETADINE [Concomitant]
  3. GENTAMICIN [Concomitant]
  4. DEXAMETHASONE [Concomitant]

REACTIONS (2)
  - Angle closure glaucoma [None]
  - Neovascularisation [None]
